FAERS Safety Report 4568253-7 (Version None)
Quarter: 2005Q1

REPORT INFORMATION
  Report Type: 
  Country: None (occurrence: None)
  Receive Date: 20050131
  Receipt Date: 20050117
  Transmission Date: 20050727
  Serious: Yes (Hospitalization)
  Sender: FDA-Public Use
  Company Number: 2005CG00141

PATIENT
  Age: 76 Year
  Sex: Female

DRUGS (13)
  1. OMEPRAZOLE [Suspect]
     Dates: end: 20040927
  2. NOOTROPYL [Suspect]
     Dates: end: 20040927
  3. DURAGESIC [Suspect]
     Dates: end: 20040927
  4. CELEBREX [Suspect]
     Dates: end: 20040927
  5. DAONIL [Suspect]
     Dates: end: 20040927
  6. DEROXAT [Suspect]
     Dates: end: 20040927
  7. RISPERDAL [Suspect]
  8. STAGID [Suspect]
     Dates: end: 20040927
  9. GLUCOR [Suspect]
     Dates: end: 20040927
  10. CHRONADALATE [Suspect]
     Dates: end: 20040927
  11. NITROGLYCERIN [Concomitant]
  12. XANAX [Concomitant]
  13. FOSINOPRIL SODIUM [Concomitant]

REACTIONS (2)
  - ABNORMAL BEHAVIOUR [None]
  - EXTRAPYRAMIDAL DISORDER [None]
